FAERS Safety Report 15755823 (Version 1)
Quarter: 2018Q4

REPORT INFORMATION
  Report Type: Spontaneous
  Country: IT (occurrence: IT)
  Receive Date: 20181224
  Receipt Date: 20181224
  Transmission Date: 20190205
  Serious: Yes (Hospitalization)
  Sender: FDA-Public Use
  Company Number: IT-CELLTRION INC.-2018IT024778

PATIENT

DRUGS (16)
  1. ALLOPURINOL. [Suspect]
     Active Substance: ALLOPURINOL
     Indication: PRODUCT USED FOR UNKNOWN INDICATION
     Dosage: 300 MG, 1X/DAY; UNKNOWN
  2. FUROSEMIDE. [Concomitant]
     Active Substance: FUROSEMIDE
  3. PHENFORMIN [Concomitant]
     Active Substance: PHENFORMIN
  4. METHOTREXATE. [Suspect]
     Active Substance: METHOTREXATE
     Dosage: 5 MG, WEEKLY; UNKNOWN
     Route: 065
     Dates: start: 200012, end: 200106
  5. ATENOLOL. [Concomitant]
     Active Substance: ATENOLOL
  6. RABEPRAZOLE [Concomitant]
     Active Substance: RABEPRAZOLE
  7. METHOTREXATE. [Suspect]
     Active Substance: METHOTREXATE
     Indication: RHEUMATOID ARTHRITIS
     Dosage: 10 MG, WEEKLY
     Route: 065
     Dates: start: 199609, end: 200004
  8. HYDROCHLOROTHIAZIDE. [Concomitant]
     Active Substance: HYDROCHLOROTHIAZIDE
  9. LEFLUNOMIDE. [Suspect]
     Active Substance: LEFLUNOMIDE
     Indication: RHEUMATOID ARTHRITIS
     Dosage: 20 MG, 1X/DAY; UNKNOWN
     Dates: start: 200106, end: 200109
  10. AMLODIPINE [Concomitant]
     Active Substance: AMLODIPINE BESYLATE
  11. GLIBENCLAMIDE [Concomitant]
     Active Substance: GLYBURIDE
  12. METHOTREXATE. [Suspect]
     Active Substance: METHOTREXATE
     Dosage: 5 MG, WEEKLY; UNKNOWN
     Route: 065
     Dates: start: 200109
  13. METHOTREXATE. [Suspect]
     Active Substance: METHOTREXATE
     Dosage: 5 MG, WEEKLY; UNKNOWN
     Route: 065
     Dates: start: 200109
  14. INFLIXIMAB PFIZER (UNKNOWN) [Suspect]
     Active Substance: INFLIXIMAB
     Indication: RHEUMATOID ARTHRITIS
     Dosage: 3 MG/KG, UNK
     Route: 042
     Dates: start: 200110
  15. IRBESARTAN. [Concomitant]
     Active Substance: IRBESARTAN
  16. METHOTREXATE. [Suspect]
     Active Substance: METHOTREXATE
     Dosage: 5 MG, WEEKLY; UNKNOWN
     Route: 065
     Dates: start: 200109

REACTIONS (3)
  - Drug interaction [Unknown]
  - Bone marrow failure [Unknown]
  - Drug ineffective [Unknown]

NARRATIVE: CASE EVENT DATE: 200106
